FAERS Safety Report 15866241 (Version 5)
Quarter: 2020Q1

REPORT INFORMATION
  Report Type: Spontaneous
  Country: US (occurrence: US)
  Receive Date: 20190125
  Receipt Date: 20200106
  Transmission Date: 20200409
  Serious: No
  Sender: FDA-Public Use
  Company Number: US-PFIZER INC-2019031767

PATIENT
  Age: 63 Year
  Sex: Male

DRUGS (2)
  1. LYRICA [Suspect]
     Active Substance: PREGABALIN
     Dosage: 200 MG, 3X/DAY(1 CAPSULE 3 TIMES A DAY FOR 30 DAYS)
     Route: 048
  2. LYRICA [Suspect]
     Active Substance: PREGABALIN
     Indication: COMPLEX REGIONAL PAIN SYNDROME
     Dosage: 400 MG, DAILY

REACTIONS (8)
  - Mental disorder [Unknown]
  - Withdrawal syndrome [Unknown]
  - Product use in unapproved indication [Unknown]
  - Intentional product use issue [Unknown]
  - Irritability [Unknown]
  - Blood pressure increased [Unknown]
  - Off label use [Unknown]
  - Neuralgia [Unknown]
